FAERS Safety Report 6961282-5 (Version None)
Quarter: 2010Q3

REPORT INFORMATION
  Report Type: 
  Country: None (occurrence: None)
  Receive Date: 20100901
  Receipt Date: 20100826
  Transmission Date: 20110219
  Serious: Yes (Death)
  Sender: FDA-Public Use
  Company Number: A0876976A

PATIENT
  Age: 81 Year
  Sex: Male

DRUGS (1)
  1. COREG CR [Suspect]
     Indication: PRODUCT USED FOR UNKNOWN INDICATION
     Dosage: 10MG UNKNOWN
     Route: 048
     Dates: start: 20090901

REACTIONS (1)
  - DEATH [None]
